FAERS Safety Report 9910334 (Version 3)
Quarter: 2014Q2

REPORT INFORMATION
  Report Type: Spontaneous
  Country: US (occurrence: US)
  Receive Date: 20140219
  Receipt Date: 20140501
  Transmission Date: 20141212
  Serious: Yes (Hospitalization)
  Sender: FDA-Public Use
  Company Number: US-B.I. PHARMACEUTICALS,INC./RIDGEFIELD-2011-BP-04551BP

PATIENT
  Age: 76 Year
  Sex: Female
  Weight: 97.52 kg

DRUGS (15)
  1. PRADAXA [Suspect]
     Indication: CEREBROVASCULAR ACCIDENT PROPHYLAXIS
     Dosage: 300 MG
     Route: 048
     Dates: start: 20101213
  2. PRADAXA [Suspect]
     Indication: THROMBOSIS PROPHYLAXIS
     Dosage: 150 MG
     Route: 065
  3. PRADAXA [Suspect]
     Indication: ATRIAL FIBRILLATION
     Dosage: 150 MG
     Route: 065
     Dates: end: 20110415
  4. LEVOTHYROXINE [Concomitant]
     Dosage: 100 MCG
     Route: 048
     Dates: start: 2003
  5. DIOVAN [Concomitant]
     Dosage: 160 MG
     Route: 048
     Dates: start: 2003
  6. FUROSEMIDE [Concomitant]
     Indication: OEDEMA
     Dosage: 20 MG
     Route: 048
     Dates: start: 2010
  7. HYTRIN [Concomitant]
     Dosage: 1 MG
     Route: 048
     Dates: start: 2003
  8. NORVASC [Concomitant]
     Dosage: 5 MG
     Route: 048
     Dates: start: 2003
  9. ZEMPLAR [Concomitant]
     Route: 065
     Dates: start: 2010
  10. BABY ASPIRIN [Concomitant]
     Route: 065
  11. FISH OIL [Concomitant]
     Route: 048
  12. ESTER C [Concomitant]
     Route: 065
  13. LOVASTATIN [Concomitant]
     Dosage: 20 MG
     Route: 048
  14. TRIBENZOR [Concomitant]
     Dosage: 12.5 MG
     Route: 048
  15. RYTHMOL SR [Concomitant]
     Dosage: 450 MG
     Route: 048

REACTIONS (6)
  - Pulmonary haemorrhage [Unknown]
  - Pneumonitis [Unknown]
  - Haemoptysis [Recovered/Resolved]
  - Contusion [Unknown]
  - Activated partial thromboplastin time prolonged [Unknown]
  - Thrombin time prolonged [Unknown]
